FAERS Safety Report 9052300 (Version 1)
Quarter: 2013Q1

REPORT INFORMATION
  Report Type: Spontaneous
  Country: PT (occurrence: PT)
  Receive Date: 20130206
  Receipt Date: 20130206
  Transmission Date: 20140127
  Serious: Yes (Other)
  Sender: FDA-Public Use
  Company Number: PT-PFIZER INC-2013041579

PATIENT
  Age: 51 Year
  Sex: Male

DRUGS (3)
  1. XANAX [Suspect]
     Dosage: 0.5 MG, 3X/DAY
     Route: 048
     Dates: start: 20130121
  2. SERTRALINE [Concomitant]
     Dosage: 50 MG, 1X/DAY
     Route: 048
     Dates: start: 20130122
  3. BERTOCIL [Concomitant]
     Indication: GLAUCOMA
     Dosage: UNK
     Route: 047
     Dates: end: 20130129

REACTIONS (1)
  - Intraocular pressure increased [Unknown]
